FAERS Safety Report 6064467-8 (Version None)
Quarter: 2009Q1

REPORT INFORMATION
  Report Type: 
  Country: None (occurrence: None)
  Receive Date: 20090203
  Receipt Date: 20090203
  Transmission Date: 20090719
  Serious: Yes (Hospitalization, Disabling, Other)
  Sender: FDA-Public Use
  Company Number: None

PATIENT
  Sex: Female
  Weight: 65.7716 kg

DRUGS (3)
  1. SPIRIVA [Suspect]
     Indication: CHRONIC OBSTRUCTIVE PULMONARY DISEASE
     Dosage: I PUFF ONCE DAILY PO
     Route: 048
     Dates: start: 20040710, end: 20090130
  2. ADVAIR HFA [Concomitant]
  3. LEXAPRO [Concomitant]

REACTIONS (18)
  - CANDIDIASIS [None]
  - CONSTIPATION [None]
  - DEPRESSION [None]
  - DRY MOUTH [None]
  - DRY SKIN [None]
  - DYSPHAGIA [None]
  - EAR DISCOMFORT [None]
  - EPISTAXIS [None]
  - HEART RATE INCREASED [None]
  - HYPERTENSION [None]
  - IMPAIRED GASTRIC EMPTYING [None]
  - JOINT SWELLING [None]
  - PRURITUS [None]
  - SINUSITIS [None]
  - SJOGREN'S SYNDROME [None]
  - UPPER RESPIRATORY TRACT INFECTION [None]
  - URINARY RETENTION [None]
  - VISION BLURRED [None]
